FAERS Safety Report 9758569 (Version 1)
Quarter: 2013Q4

REPORT INFORMATION
  Report Type: Spontaneous
  Country: US (occurrence: None)
  Receive Date: 20131216
  Receipt Date: 20131216
  Transmission Date: 20140711
  Serious: Yes (Death)
  Sender: FDA-Public Use
  Company Number: 2013010113 (0)

PATIENT
  Sex: 0

DRUGS (6)
  1. CARISOPRODOL (CARISOPRODOL) [Suspect]
  2. ALCOHOL (ETHANOL) [Suspect]
  3. DIAZEPAM [Suspect]
  4. TEMAZEPAM (TEMAZEPAM) [Suspect]
  5. ?AMITRIPTYLINE [Suspect]
  6. NORTRIPTYLINE [Suspect]

REACTIONS (1)
  - Accidental overdose [None]
